FAERS Safety Report 10912626 (Version 1)
Quarter: 2015Q1

REPORT INFORMATION
  Report Type: Spontaneous
  Country: US (occurrence: US)
  Receive Date: 20150313
  Receipt Date: 20150313
  Transmission Date: 20150721
  Serious: Yes (Other)
  Sender: FDA-Public Use
  Company Number: US-JNJFOC-20150208287

PATIENT
  Age: 59 Year
  Sex: Female

DRUGS (6)
  1. LASIX [Concomitant]
     Active Substance: FUROSEMIDE
  2. IMBRUVICA [Suspect]
     Active Substance: IBRUTINIB
     Indication: CHRONIC LYMPHOCYTIC LEUKAEMIA
     Route: 048
     Dates: start: 20140828
  3. ACYCLOVIR. [Concomitant]
     Active Substance: ACYCLOVIR
  4. LOSARTAN POTASSIUM. [Concomitant]
     Active Substance: LOSARTAN POTASSIUM
  5. IMBRUVICA [Suspect]
     Active Substance: IBRUTINIB
     Indication: CHRONIC LYMPHOCYTIC LEUKAEMIA
     Route: 048
     Dates: start: 2015, end: 201501
  6. COREG CR [Concomitant]
     Active Substance: CARVEDILOL PHOSPHATE

REACTIONS (4)
  - Blood count abnormal [Unknown]
  - Fall [Unknown]
  - Femur fracture [Unknown]
  - Platelet count abnormal [Not Recovered/Not Resolved]

NARRATIVE: CASE EVENT DATE: 201502
